FAERS Safety Report 7993373-4 (Version None)
Quarter: 2011Q4

REPORT INFORMATION
  Report Type: 
  Country: None (occurrence: None)
  Receive Date: 20111219
  Receipt Date: 20110808
  Transmission Date: 20120403
  Serious: No
  Sender: FDA-Public Use
  Company Number: US-ASTRAZENECA-2011SE47343

PATIENT
  Sex: Female

DRUGS (2)
  1. CRESTOR [Suspect]
     Dosage: BREAKING TABLET IN HALF
     Route: 048
  2. CRESTOR [Suspect]
     Route: 048

REACTIONS (3)
  - WRONG TECHNIQUE IN DRUG USAGE PROCESS [None]
  - INTENTIONAL DRUG MISUSE [None]
  - ABDOMINAL DISCOMFORT [None]
